FAERS Safety Report 9323652 (Version 2)
Quarter: 2013Q2

REPORT INFORMATION
  Report Type: Spontaneous
  Country: LU (occurrence: LU)
  Receive Date: 20130603
  Receipt Date: 20130612
  Transmission Date: 20140414
  Serious: Yes (Other)
  Sender: FDA-Public Use
  Company Number: PHHY2013LU055422

PATIENT
  Sex: Female

DRUGS (4)
  1. GLIVEC [Suspect]
     Dosage: 400 MG, DAILY
     Route: 048
     Dates: start: 201007
  2. EUTHYROX [Concomitant]
     Dosage: 75 MG, DAILY
     Route: 048
  3. MAGNESIUM [Concomitant]
     Dosage: UNK UKN, UNK
  4. KALIENOR [Concomitant]
     Dosage: UNK UKN, UNK

REACTIONS (1)
  - Photopsia [Not Recovered/Not Resolved]
